FAERS Safety Report 17608941 (Version 2)
Quarter: 2020Q4

REPORT INFORMATION
  Report Type: Report from Study
  Country: US (occurrence: US)
  Receive Date: 20200401
  Receipt Date: 20201204
  Transmission Date: 20210113
  Serious: Yes (Hospitalization)
  Sender: FDA-Public Use
  Company Number: US-ROCHE-2565254

PATIENT
  Age: 73 Year
  Sex: Male
  Weight: 89 kg

DRUGS (2)
  1. LENALIDOMIDE [Suspect]
     Active Substance: LENALIDOMIDE
     Indication: B-CELL LYMPHOMA
     Dosage: ON 26/FEB/2020, HE RECEIVED LAST DOSE OF ORAL LENALIDOMIDE PRIOR TO THE ONSET OF SERIOUS ADVERSE EVE
     Route: 048
     Dates: start: 20200211
  2. OBINUTUZUMAB. [Suspect]
     Active Substance: OBINUTUZUMAB
     Indication: B-CELL LYMPHOMA
     Dosage: ON 11/FEB/2020, HE RECEIVED THE LAST DOSE OF INTRAVENOUS OBINUTUZUMAB PRIOR TO THE ONSET OF SERIOUS
     Route: 042
     Dates: start: 20200211

REACTIONS (1)
  - Spinal cord compression [Not Recovered/Not Resolved]

NARRATIVE: CASE EVENT DATE: 20200227
